FAERS Safety Report 4519877-4 (Version None)
Quarter: 2004Q4

REPORT INFORMATION
  Report Type: 
  Country: None (occurrence: None)
  Receive Date: 20041201
  Receipt Date: 20041201
  Transmission Date: 20050328
  Serious: No
  Sender: FDA-Public Use
  Company Number: None

PATIENT
  Age: 69 Year
  Sex: Male
  Weight: 103.1 kg

DRUGS (2)
  1. SIMVASTATIN [Suspect]
     Indication: HYPERLIPIDAEMIA
     Dosage: 40MG QHS ORAL
     Route: 048
     Dates: start: 20040520, end: 20041008
  2. PROPOXYPHENE N [Concomitant]

REACTIONS (1)
  - MENTAL DISORDER [None]
